FAERS Safety Report 8031745-2 (Version None)
Quarter: 2012Q1

REPORT INFORMATION
  Report Type: 
  Country: None (occurrence: None)
  Receive Date: 20120109
  Receipt Date: 20120105
  Transmission Date: 20120608
  Serious: No
  Sender: FDA-Public Use
  Company Number: US-BAYER-2012-002450

PATIENT
  Sex: Female

DRUGS (3)
  1. IBUPROFEN (ADVIL) [Concomitant]
     Indication: BONE PAIN
  2. TAXOL [Concomitant]
     Dosage: UNK
  3. ALEVE (CAPLET) [Suspect]
     Indication: BONE PAIN

REACTIONS (1)
  - BONE PAIN [None]
